FAERS Safety Report 14072773 (Version 1)
Quarter: 2017Q4

REPORT INFORMATION
  Report Type: Spontaneous
  Country: US (occurrence: US)
  Receive Date: 20171010
  Receipt Date: 20171010
  Transmission Date: 20180321
  Serious: No
  Sender: FDA-Public Use
  Company Number: US-JNJFOC-20170707998

PATIENT
  Age: 56 Year
  Sex: Female
  Weight: 104.78 kg

DRUGS (2)
  1. TYLENOL EXTRA STRENGTH [Suspect]
     Active Substance: ACETAMINOPHEN
     Indication: KNEE ARTHROPLASTY
     Dosage: 2 TABLETS EVERY 4 HOURS; ABOUT A MONTH AGO
     Route: 048
  2. TYLENOL EXTRA STRENGTH [Suspect]
     Active Substance: ACETAMINOPHEN
     Indication: KNEE OPERATION
     Dosage: 2 TABLETS EVERY 4 HOURS; ABOUT A MONTH AGO
     Route: 048

REACTIONS (3)
  - Discomfort [Recovering/Resolving]
  - Food allergy [Recovering/Resolving]
  - Product use in unapproved indication [Recovering/Resolving]
